FAERS Safety Report 7355613-4 (Version None)
Quarter: 2011Q1

REPORT INFORMATION
  Report Type: 
  Country: None (occurrence: None)
  Receive Date: 20110316
  Receipt Date: 20110307
  Transmission Date: 20110831
  Serious: Yes (Death)
  Sender: FDA-Public Use
  Company Number: US-CELGENEUS-163-21880-11030809

PATIENT
  Sex: Male

DRUGS (8)
  1. REVLIMID [Suspect]
     Dosage: 10 MILLIGRAM
     Route: 048
     Dates: start: 20090601, end: 20090101
  2. DEXAMETHASONE [Concomitant]
     Route: 065
  3. CYTOXAN [Concomitant]
     Route: 065
  4. REVLIMID [Suspect]
     Indication: MULTIPLE MYELOMA
     Dosage: 25 MILLIGRAM
     Route: 048
     Dates: start: 20071001, end: 20080101
  5. REVLIMID [Suspect]
     Dosage: 15 MILLIGRAM
     Route: 048
     Dates: start: 20100301
  6. MIRALAX [Concomitant]
     Route: 065
  7. VELCADE [Concomitant]
     Route: 065
  8. VITAMIN D [Concomitant]
     Route: 065

REACTIONS (1)
  - DEATH [None]
